FAERS Safety Report 15160167 (Version 1)
Quarter: 2018Q3

REPORT INFORMATION
  Report Type: Spontaneous
  Country: US (occurrence: US)
  Receive Date: 20180718
  Receipt Date: 20180718
  Transmission Date: 20181010
  Serious: No
  Sender: FDA-Public Use
  Company Number: US-B.I. PHARMACEUTICALS,INC./RIDGEFIELD-2018-BI-036168

PATIENT
  Age: 70 Year
  Sex: Female

DRUGS (6)
  1. INCRUSE ELLIPTA [Concomitant]
     Active Substance: UMECLIDINIUM BROMIDE
     Indication: CHRONIC OBSTRUCTIVE PULMONARY DISEASE
  2. ASPIRIN/CAFFEINE TABLET [Concomitant]
     Indication: HEADACHE
     Dosage: AS NEEDED;
     Route: 048
  3. SPIRIVA [Suspect]
     Active Substance: TIOTROPIUM BROMIDE MONOHYDRATE
     Indication: CHRONIC OBSTRUCTIVE PULMONARY DISEASE
  4. SPIRIVA [Suspect]
     Active Substance: TIOTROPIUM BROMIDE MONOHYDRATE
     Indication: BRONCHITIS CHRONIC
     Dosage: QD;  FORM STRENGTH: 18 MCG; FORMULATION: CAPSULE ACTION(S) TAKEN WITH PRODUCT: NOT REPORTED
     Route: 055
     Dates: start: 2009
  5. INCRUSE ELLIPTA [Concomitant]
     Active Substance: UMECLIDINIUM BROMIDE
     Indication: BRONCHITIS CHRONIC
     Route: 055
  6. WELLBUTRIN [Concomitant]
     Active Substance: BUPROPION HYDROCHLORIDE
     Indication: SMOKING CESSATION THERAPY
     Dosage: QD;  FORM STRENGTH: 20MG
     Route: 048

REACTIONS (5)
  - Fear [Recovered/Resolved]
  - Cataract [Recovered/Resolved]
  - Nausea [Recovered/Resolved]
  - Bronchitis chronic [Not Recovered/Not Resolved]
  - Incorrect route of drug administration [Recovered/Resolved]

NARRATIVE: CASE EVENT DATE: 2014
